FAERS Safety Report 10053326 (Version 4)
Quarter: 2014Q2

REPORT INFORMATION
  Report Type: Spontaneous
  Country: US (occurrence: US)
  Receive Date: 20140402
  Receipt Date: 20140428
  Transmission Date: 20141212
  Serious: No
  Sender: FDA-Public Use
  Company Number: US-009507513-1403USA008643

PATIENT
  Sex: Female
  Weight: 70.3 kg

DRUGS (1)
  1. IMPLANON [Suspect]
     Indication: CONTRACEPTION
     Dosage: 3 YEAR IMPLANT
     Route: 058
     Dates: start: 20120911, end: 20140319

REACTIONS (2)
  - Device breakage [Not Recovered/Not Resolved]
  - Amenorrhoea [Unknown]
